FAERS Safety Report 8173167-X (Version None)
Quarter: 2012Q1

REPORT INFORMATION
  Report Type: 
  Country: None (occurrence: None)
  Receive Date: 20120229
  Receipt Date: 20110505
  Transmission Date: 20120608
  Serious: No
  Sender: FDA-Public Use
  Company Number: US-GLAXOSMITHKLINE-A0926974A

PATIENT
  Sex: Female

DRUGS (4)
  1. IMITREX [Suspect]
     Indication: MIGRAINE
     Route: 065
  2. RELPAX [Suspect]
     Indication: MIGRAINE
     Dosage: 20MG AS REQUIRED
     Route: 048
     Dates: start: 20070101
  3. XANAX [Concomitant]
     Dates: start: 20010101
  4. ASPIRIN [Concomitant]
     Dosage: 325MG AS REQUIRED

REACTIONS (7)
  - DYSPNOEA [None]
  - FATIGUE [None]
  - MOBILITY DECREASED [None]
  - NAUSEA [None]
  - DRUG INEFFECTIVE [None]
  - PULMONARY MYCOSIS [None]
  - TRAUMATIC LUNG INJURY [None]
